FAERS Safety Report 25011015 (Version 1)
Quarter: 2025Q1

REPORT INFORMATION
  Report Type: Spontaneous
  Country: CH (occurrence: CH)
  Receive Date: 20250225
  Receipt Date: 20250225
  Transmission Date: 20250409
  Serious: Yes (Hospitalization)
  Sender: ORGANON
  Company Number: None

PATIENT
  Age: 54 Year
  Sex: Male
  Weight: 70 kg

DRUGS (13)
  1. REMERON [Suspect]
     Active Substance: MIRTAZAPINE
     Dosage: 30 MILLIGRAM, QD
     Dates: start: 20240625
  2. LORAZEPAM [Suspect]
     Active Substance: LORAZEPAM
     Dosage: 1 MILLIGRAM, PRN (AS NECESSARY)
     Route: 048
     Dates: start: 20240724
  3. AMISULPRIDE [Suspect]
     Active Substance: AMISULPRIDE
     Dosage: 400 MILLIGRAM, Q12H
     Route: 048
     Dates: start: 20241107
  4. CLOTHIAPINE [Suspect]
     Active Substance: CLOTHIAPINE
     Dosage: 40 MILLIGRAM, QD
     Route: 048
     Dates: start: 20241120, end: 20250110
  5. METHADONE HYDROCHLORIDE [Suspect]
     Active Substance: METHADONE HYDROCHLORIDE
     Indication: Drug dependence
     Dosage: 60 MILLIGRAM, QD (12ML)
     Route: 048
     Dates: start: 20241106
  6. QUETIAPINE FUMARATE [Suspect]
     Active Substance: QUETIAPINE FUMARATE
     Dosage: 50 MILLIGRAM, QD (20 ML 3XDAY)
     Route: 048
     Dates: start: 20241107, end: 20250110
  7. CHLORPROTHIXENE [Suspect]
     Active Substance: CHLORPROTHIXENE
     Dosage: 50 MILLIGRAM, Q6H
     Route: 048
     Dates: start: 20241107
  8. PANTOPRAZOLE SODIUM [Concomitant]
     Active Substance: PANTOPRAZOLE SODIUM
     Dosage: 40 MG 1X DAY, CALCIMAGON D3 1X DAY, BENEXOL B12 1X DAY, FOLS?URE AL 5 MG 1X DAY, DUPHALAC 20 ML 3X D
     Route: 048
  9. CALCIUM\CHOLECALCIFEROL [Concomitant]
     Active Substance: CALCIUM\CHOLECALCIFEROL
     Dosage: 1 DOSAGE FORM, QD
     Route: 048
  10. BENEXOL B12 [COCARBOXYLASE HYDROCHLORIDE;HYDROXOCOBALAMIN;PYRIDOXINE H [Concomitant]
     Dosage: B12 1X DAY, FOLS?URE AL 5 MG 1X DAY, DUPHALAC 20 ML 3X DAY, HALDOL 20 GTT MAX 3X DAY AS NEEDED
     Route: 048
  11. FOLIC ACID [Concomitant]
     Active Substance: FOLIC ACID
     Dosage: 5 MILLIGRAM, QD
     Route: 048
  12. DUPHALAC [Concomitant]
     Active Substance: LACTULOSE
     Dosage: 20 MILLILITER, Q8H
     Route: 048
  13. HALDOL [Concomitant]
     Active Substance: HALOPERIDOL
     Dosage: 20 DOSAGE FORM, PRN (AS NECESSARY) (20 GTT MAX 3XDAY IF REQUIRED)
     Route: 048

REACTIONS (2)
  - Somnolence [Recovering/Resolving]
  - Parkinsonism [Unknown]

NARRATIVE: CASE EVENT DATE: 20250110
